FAERS Safety Report 23401063 (Version 1)
Quarter: 2024Q1

REPORT INFORMATION
  Report Type: Other
  Country: US (occurrence: None)
  Receive Date: 20240115
  Receipt Date: 20240115
  Transmission Date: 20240409
  Serious: No
  Sender: FDA-Public Use
  Company Number: US-ROCHE-3490787

PATIENT
  Age: 51 Year
  Sex: Female
  Weight: 87.622 kg

DRUGS (16)
  1. OCREVUS [Suspect]
     Active Substance: OCRELIZUMAB
     Indication: Progressive multiple sclerosis
     Dosage: STRENGTH:30MG/ML?THEN 600MG EVERY 6 MONTH
     Route: 042
     Dates: start: 2023
  2. OCREVUS [Suspect]
     Active Substance: OCRELIZUMAB
     Indication: Relapsing multiple sclerosis
  3. CARBIDOPA [Concomitant]
     Active Substance: CARBIDOPA
  4. HYDROCODONE [Concomitant]
     Active Substance: HYDROCODONE
  5. BACLOFEN [Concomitant]
     Active Substance: BACLOFEN
  6. DALFAMPRIDINE [Concomitant]
     Active Substance: DALFAMPRIDINE
  7. VENLAFAXINE [Concomitant]
     Active Substance: VENLAFAXINE HYDROCHLORIDE
  8. TIZANIDINE [Concomitant]
     Active Substance: TIZANIDINE
  9. MELOXICAM [Concomitant]
     Active Substance: MELOXICAM
  10. NITROFURANTOIN [Concomitant]
     Active Substance: NITROFURANTOIN
  11. TAMSULOSIN [Concomitant]
     Active Substance: TAMSULOSIN
  12. FLECAINIDE [Concomitant]
     Active Substance: FLECAINIDE
  13. ROSUVASTATIN [Concomitant]
     Active Substance: ROSUVASTATIN
  14. FAMOTIDINE [Concomitant]
     Active Substance: FAMOTIDINE
  15. XARELTO [Concomitant]
     Active Substance: RIVAROXABAN
  16. GABAPENTIN [Concomitant]
     Active Substance: GABAPENTIN

REACTIONS (1)
  - Influenza [Recovered/Resolved]

NARRATIVE: CASE EVENT DATE: 20230101
